FAERS Safety Report 6318943-0 (Version None)
Quarter: 2009Q3

REPORT INFORMATION
  Report Type: 
  Country: None (occurrence: None)
  Receive Date: 20090821
  Receipt Date: 20090311
  Transmission Date: 20100115
  Serious: No
  Sender: FDA-Public Use
  Company Number: US-ABBOTT-09P-163-0561165-00

PATIENT
  Sex: Female
  Weight: 55.388 kg

DRUGS (4)
  1. NIASPAN [Suspect]
     Indication: BLOOD CHOLESTEROL INCREASED
     Route: 048
     Dates: start: 20081231
  2. AVAPRO [Concomitant]
     Indication: HYPERTENSION
     Route: 048
  3. PULMICORT-100 [Concomitant]
     Indication: ASTHMA
     Route: 055
  4. NASACORT [Concomitant]
     Indication: ASTHMA
     Route: 045

REACTIONS (6)
  - DERMATITIS CONTACT [None]
  - EXCORIATION [None]
  - FLUSHING [None]
  - HYPERHIDROSIS [None]
  - PRURITUS [None]
  - SKIN BURNING SENSATION [None]
